FAERS Safety Report 6101663-5 (Version None)
Quarter: 2009Q1

REPORT INFORMATION
  Report Type: 
  Country: None (occurrence: None)
  Receive Date: 20090303
  Receipt Date: 20090303
  Transmission Date: 20090719
  Serious: Yes (Disabling, Other)
  Sender: FDA-Public Use
  Company Number: None

PATIENT
  Age: 33 Year
  Sex: Female
  Weight: 52.1637 kg

DRUGS (1)
  1. MIRENA [Suspect]
     Indication: CONTRACEPTION
     Dosage: INTRA-UTERINE
     Route: 015
     Dates: start: 20071119, end: 20081006

REACTIONS (11)
  - ABDOMINAL DISTENSION [None]
  - ALOPECIA [None]
  - DEPRESSION [None]
  - HAEMORRHAGE [None]
  - HEADACHE [None]
  - MENSTRUAL DISORDER [None]
  - MOOD SWINGS [None]
  - MUSCLE SPASMS [None]
  - SERUM FERRITIN DECREASED [None]
  - URINARY TRACT INFECTION [None]
  - WEIGHT INCREASED [None]
